FAERS Safety Report 22383229 (Version 1)
Quarter: 2023Q2

REPORT INFORMATION
  Report Type: Spontaneous
  Country: CN (occurrence: CN)
  Receive Date: 20230530
  Receipt Date: 20230530
  Transmission Date: 20230722
  Serious: Yes (Hospitalization)
  Sender: FDA-Public Use
  Company Number: CN-002147023-NVSC2023CN117668

PATIENT
  Age: 32 Year
  Sex: Male

DRUGS (5)
  1. DESLORATADINE [Suspect]
     Active Substance: DESLORATADINE
     Indication: Rhinitis allergic
     Dosage: 8.8 MG, QD
     Route: 048
     Dates: start: 20190516, end: 202001
  2. BUDESONIDE [Concomitant]
     Active Substance: BUDESONIDE
     Indication: Pneumonia
     Dosage: UNK, 2 TIMES PER DAY
     Route: 045
     Dates: start: 20190516
  3. BUDESONIDE [Concomitant]
     Active Substance: BUDESONIDE
     Indication: Rhinitis allergic
     Dosage: UNK (SUSPENSION INHALATION TREATMENT)
     Dates: start: 202001
  4. FEBUXOSTAT [Concomitant]
     Active Substance: FEBUXOSTAT
     Indication: Glomerulonephritis chronic
     Dosage: UNK
     Route: 065
  5. FEBUXOSTAT [Concomitant]
     Active Substance: FEBUXOSTAT
     Indication: Hyperuricaemia

REACTIONS (2)
  - Dermatitis allergic [Recovered/Resolved]
  - Drug-induced liver injury [Recovered/Resolved]
